FAERS Safety Report 8591797-8 (Version None)
Quarter: 2012Q3

REPORT INFORMATION
  Report Type: 
  Country: None (occurrence: None)
  Receive Date: 20120814
  Receipt Date: 20120807
  Transmission Date: 20120928
  Serious: Yes (Other)
  Sender: FDA-Public Use
  Company Number: PHEH2012US010170

PATIENT
  Sex: Male

DRUGS (2)
  1. GLEEVEC [Suspect]
     Indication: GASTRIC CANCER
     Dosage: 400 MG DAILY
     Route: 048
     Dates: start: 20120501
  2. GLEEVEC [Suspect]
     Dosage: 400 MG, QD WITH FOOD
     Route: 048
     Dates: start: 20120502

REACTIONS (15)
  - DEPRESSION [None]
  - INSOMNIA [None]
  - ASCITES [None]
  - NAUSEA [None]
  - MUSCLE SPASMS [None]
  - EATING DISORDER [None]
  - CONSTIPATION [None]
  - TERMINAL STATE [None]
  - OEDEMA PERIPHERAL [None]
  - FLATULENCE [None]
  - MOOD ALTERED [None]
  - VOMITING [None]
  - ANXIETY [None]
  - ERUCTATION [None]
  - WEIGHT DECREASED [None]
